FAERS Safety Report 9118831 (Version 1)
Quarter: 2013Q1

REPORT INFORMATION
  Report Type: Spontaneous
  Country: US (occurrence: None)
  Receive Date: 20130130
  Receipt Date: 20130130
  Transmission Date: 20140127
  Serious: Yes (Other)
  Sender: FDA-Public Use
  Company Number: 2013-000150

PATIENT
  Age: 59 Year
  Sex: Female

DRUGS (5)
  1. ACTONEL [Suspect]
     Indication: OSTEOPENIA
     Dosage: 150 MG ONCE MONTHLY.
     Route: 048
     Dates: start: 2010, end: 201203
  2. ACTONEL [Suspect]
     Indication: OSTEOPENIA
     Dosage: 35 MG ONCE WEEKLY.
     Route: 048
     Dates: start: 2008, end: 2010
  3. TOPROL (METOPROLOL SUCCINATE) [Concomitant]
  4. SYNTHROID (LEVOTHYROXINE SODIUM) [Concomitant]
  5. ALL OTHER THERAPEUTIC PRODUCTS [Concomitant]

REACTIONS (6)
  - Barrett^s oesophagus [None]
  - Gastric ulcer [None]
  - Bursitis [None]
  - Palpitations [None]
  - Loose tooth [None]
  - Feeling abnormal [None]
